FAERS Safety Report 21044143 (Version 1)
Quarter: 2022Q3

REPORT INFORMATION
  Report Type: Report from Study
  Country: BR (occurrence: BR)
  Receive Date: 20220705
  Receipt Date: 20220705
  Transmission Date: 20221026
  Serious: Yes (Hospitalization)
  Sender: FDA-Public Use
  Company Number: BR-JNJFOC-20220656124

PATIENT
  Age: 36 Year
  Sex: Female
  Weight: 53 kg

DRUGS (3)
  1. STELARA [Suspect]
     Active Substance: USTEKINUMAB
     Indication: Crohn^s disease
     Route: 058
     Dates: start: 20180214
  2. STELARA [Suspect]
     Active Substance: USTEKINUMAB
  3. ACYCLOVIR [Concomitant]
     Active Substance: ACYCLOVIR
     Indication: Meningoencephalitis viral

REACTIONS (1)
  - Meningoencephalitis viral [Recovered/Resolved]

NARRATIVE: CASE EVENT DATE: 20220521
